FAERS Safety Report 22132968 (Version 6)
Quarter: 2025Q1

REPORT INFORMATION
  Report Type: Report from Study
  Country: US (occurrence: US)
  Receive Date: 20230323
  Receipt Date: 20250210
  Transmission Date: 20250408
  Serious: No
  Sender: ABBVIE
  Company Number: US-ABBVIE-4696917

PATIENT
  Age: 60 Year
  Sex: Male
  Weight: 65.317 kg

DRUGS (4)
  1. IMBRUVICA [Suspect]
     Active Substance: IBRUTINIB
     Indication: Waldenstrom^s macroglobulinaemia
     Dosage: FORM STRENGTH: 420 MG
     Route: 048
     Dates: start: 20190926, end: 20230318
  2. IMBRUVICA [Suspect]
     Active Substance: IBRUTINIB
     Indication: Waldenstrom^s macroglobulinaemia
     Dosage: FORM STRENGTH: 420 MG
     Route: 048
     Dates: start: 20230518
  3. IMBRUVICA [Suspect]
     Active Substance: IBRUTINIB
     Indication: Lymphoplasmacytoid lymphoma/immunocytoma
     Dosage: FORM STRENGTH: 140 MG, 140 MG THREE TIMES PER DAY
     Route: 048
     Dates: start: 20230319, end: 20230517
  4. VITAMIN B COMPLEX [Concomitant]
     Active Substance: CYANOCOBALAMIN\DEXPANTHENOL\NIACINAMIDE\PYRIDOXINE HYDROCHLORIDE\RIBOFLAVIN 5^-PHOSPHATE SODIUM\THIA
     Indication: Supplementation therapy

REACTIONS (6)
  - Monoclonal immunoglobulin increased [Recovering/Resolving]
  - Product use complaint [Recovered/Resolved]
  - Product physical issue [Unknown]
  - Red blood cell count abnormal [Unknown]
  - Phagophobia [Unknown]
  - Choking sensation [Unknown]

NARRATIVE: CASE EVENT DATE: 20220906
